FAERS Safety Report 6437022-5 (Version None)
Quarter: 2009Q4

REPORT INFORMATION
  Report Type: 
  Country: None (occurrence: None)
  Receive Date: 20091112
  Receipt Date: 20091030
  Transmission Date: 20100525
  Serious: Yes (Hospitalization)
  Sender: FDA-Public Use
  Company Number: FR-ELI_LILLY_AND_COMPANY-FR200911000034

PATIENT
  Sex: Male
  Weight: 72 kg

DRUGS (7)
  1. PEMETREXED [Suspect]
     Indication: NON-SMALL CELL LUNG CANCER
     Dosage: 500 MG/M2, UNK
     Route: 042
     Dates: start: 20090402
  2. GEMCITABINE HCL [Suspect]
     Indication: NON-SMALL CELL LUNG CANCER
     Dosage: 1250 MG/M2, UNK
     Route: 042
     Dates: start: 20081014
  3. CISPLATIN [Suspect]
     Indication: NON-SMALL CELL LUNG CANCER
     Dosage: 80 MG/M2, UNK
     Route: 042
     Dates: start: 20081014
  4. CARDENSIEL [Concomitant]
  5. DOLIPRANE [Concomitant]
  6. DI-ANTALVIC [Concomitant]
  7. INNOHEP [Concomitant]
     Route: 058

REACTIONS (2)
  - BACK PAIN [None]
  - PYREXIA [None]
